FAERS Safety Report 8985004 (Version 1)
Quarter: 2012Q4

REPORT INFORMATION
  Report Type: 
  Country: US (occurrence: US)
  Receive Date: 20121225
  Receipt Date: 20121225
  Transmission Date: 20130627
  Serious: Yes (Other)
  Sender: FDA-Public Use
  Company Number: US-ACCORD-015671

PATIENT
  Age: 42 Year
  Sex: Male

DRUGS (1)
  1. TACROLIMUS [Suspect]
     Indication: HEART TRANSPLANT

REACTIONS (3)
  - Food interaction [Recovered/Resolved]
  - Drug level increased [Recovered/Resolved]
  - Off label use [Unknown]
